FAERS Safety Report 9881365 (Version 3)
Quarter: 2015Q2

REPORT INFORMATION
  Report Type: Report from Study
  Country: JP (occurrence: JP)
  Receive Date: 20140207
  Receipt Date: 20150504
  Transmission Date: 20150821
  Serious: Yes (Death)
  Sender: FDA-Public Use
  Company Number: JP-009507513-1402JPN003132

PATIENT
  Age: 69 Year
  Sex: Female
  Weight: 48 kg

DRUGS (13)
  1. TEMODAL [Suspect]
     Active Substance: TEMOZOLOMIDE
     Dosage: 75 MG/M2, QD
     Route: 048
     Dates: start: 20111108, end: 20111124
  2. LAXOBERON [Concomitant]
     Active Substance: SODIUM PICOSULFATE
     Indication: CONSTIPATION
     Dosage: DAILY DOSAGE UNKNOWN
     Route: 048
     Dates: start: 20111011, end: 20111207
  3. MUCOSTA [Concomitant]
     Active Substance: REBAMIPIDE
     Indication: PROPHYLAXIS
     Dosage: DAILY DOSE UNKNOWN, FORMULATION: POR
     Route: 048
     Dates: start: 20111018, end: 20111228
  4. PRIMPERAN [Concomitant]
     Active Substance: METOCLOPRAMIDE HYDROCHLORIDE
     Indication: PROPHYLAXIS
     Dosage: DAILY DOSAGE UNKNOWN, FORMULATION: POR
     Route: 048
     Dates: start: 20111016, end: 20111207
  5. BAKTAR [Concomitant]
     Active Substance: SULFAMETHOXAZOLE\TRIMETHOPRIM
     Indication: ANTIFUNGAL PROPHYLAXIS
     Dosage: DAILY DOSAGE UNKNOWN
     Route: 048
     Dates: start: 20111013, end: 20120216
  6. WARFARIN POTASSIUM [Concomitant]
     Active Substance: WARFARIN POTASSIUM
     Dosage: DAILY DOSAGE UNKNOWN, FORMULATION: POR
     Route: 048
     Dates: start: 20110925, end: 20121212
  7. MAGLAX (MAGNESIUM OXIDE) [Concomitant]
     Active Substance: MAGNESIUM OXIDE
     Indication: CONSTIPATION
     Dosage: DAILY DOSAGE UNKNOWN, FORMULATION: POR
     Route: 048
     Dates: start: 20111017, end: 20111228
  8. TEMODAL [Suspect]
     Active Substance: TEMOZOLOMIDE
     Indication: GLIOBLASTOMA MULTIFORME
     Dosage: DAILY DOSAGE UNKNOWN
     Route: 048
     Dates: start: 20111011, end: 20111017
  9. PREDNISOLONE. [Suspect]
     Active Substance: PREDNISOLONE
     Dosage: DAILY DOSAGE UNKNOWN, FORMULATION: POR
     Route: 048
     Dates: start: 20110915, end: 20120216
  10. URSO [Concomitant]
     Active Substance: URSODIOL
     Dosage: DAILY DOSAGE UNKNOWN, FORMULATION: POR
     Route: 048
     Dates: start: 20110915, end: 20120216
  11. TEMOZOLOMIDE. [Suspect]
     Active Substance: TEMOZOLOMIDE
     Indication: GLIOBLASTOMA MULTIFORME
     Dosage: 75 MG/M2, QD
     Route: 041
     Dates: start: 20111018, end: 20111107
  12. BEZATOL SR [Concomitant]
     Active Substance: BEZAFIBRATE
     Dosage: DAILY DOSAGE UNKNOWN
     Route: 048
     Dates: start: 20110915, end: 20111228
  13. EXCEGRAN [Concomitant]
     Active Substance: ZONISAMIDE
     Indication: PROPHYLAXIS
     Dosage: DAILY DOSAGE UNKNOWN, FORMULATION: POR
     Route: 048
     Dates: start: 20110924, end: 20120216

REACTIONS (11)
  - Thrombocytosis [Recovered/Resolved]
  - White blood cell count increased [Not Recovered/Not Resolved]
  - Blood urea increased [Recovered/Resolved]
  - Blood urine present [Recovering/Resolving]
  - Monocytosis [Recovered/Resolved]
  - Disease progression [Fatal]
  - Lymphopenia [Not Recovered/Not Resolved]
  - Constipation [Recovering/Resolving]
  - Hyponatraemia [Recovered/Resolved]
  - Monocytosis [Not Recovered/Not Resolved]
  - Monocytopenia [Recovered/Resolved]

NARRATIVE: CASE EVENT DATE: 20111020
